FAERS Safety Report 8081959-0 (Version None)
Quarter: 2012Q1

REPORT INFORMATION
  Report Type: 
  Country: None (occurrence: None)
  Receive Date: 20120130
  Receipt Date: 20120124
  Transmission Date: 20120608
  Serious: Yes (Hospitalization)
  Sender: FDA-Public Use
  Company Number: GB-ASTRAZENECA-2012SE04908

PATIENT
  Age: 87 Year
  Sex: Male
  Weight: 72 kg

DRUGS (2)
  1. CANDESARTAN CILEXETIL [Suspect]
     Route: 048
     Dates: start: 20111014
  2. LANSOPRAZOLE [Concomitant]
     Dates: start: 20111014, end: 20111209

REACTIONS (4)
  - RENAL FAILURE ACUTE [None]
  - PROTEINURIA [None]
  - LIVER FUNCTION TEST ABNORMAL [None]
  - RASH MACULAR [None]
